FAERS Safety Report 4618486-6 (Version None)
Quarter: 2005Q1

REPORT INFORMATION
  Report Type: 
  Country: None (occurrence: None)
  Receive Date: 20050324
  Receipt Date: 20050308
  Transmission Date: 20050727
  Serious: Yes (Hospitalization)
  Sender: FDA-Public Use
  Company Number: 203703

PATIENT
  Age: 52 Year
  Sex: Female
  Weight: 58.3 kg

DRUGS (8)
  1. MABTHERA (RITUXIMAB) CONC FOR SOLUTION FOR INFUSION [Suspect]
     Indication: NON-HODGKIN'S LYMPHOMA
     Dosage: 654 MG, INTRAVENOUS
     Route: 042
     Dates: end: 20030131
  2. CYCLOPHOSPHAMIDE [Suspect]
     Indication: NON-HODGKIN'S LYMPHOMA
     Dosage: 1309 MG, INTRAVENOUS
     Route: 042
     Dates: end: 20030131
  3. DOXORUBICIN HYDROCHLORIDE [Suspect]
     Indication: NON-HODGKIN'S LYMPHOMA
     Dosage: INTRAVENOUS
     Route: 042
     Dates: end: 20030131
  4. VINCRISTINE [Suspect]
     Indication: NON-HODGKIN'S LYMPHOMA
     Dosage: 2 MG, INTRAVENOUS
     Route: 042
     Dates: end: 20030131
  5. PREDNISONE [Suspect]
     Indication: NON-HODGKIN'S LYMPHOMA
     Dosage: 500 MG, ORAL
     Route: 048
     Dates: end: 20030131
  6. HYDROMORPHONE (HYDROMORPHONE HYDROCHLORIDE) [Concomitant]
  7. GABAPENTIN [Concomitant]
  8. FRAGMIN [Concomitant]

REACTIONS (4)
  - DISEASE PROGRESSION [None]
  - LEUKOCYTOSIS [None]
  - NERVE ROOT COMPRESSION [None]
  - NON-HODGKIN'S LYMPHOMA [None]
